FAERS Safety Report 12086222 (Version 1)
Quarter: 2016Q1

REPORT INFORMATION
  Report Type: Spontaneous
  Country: US (occurrence: US)
  Receive Date: 20160217
  Receipt Date: 20160217
  Transmission Date: 20160526
  Serious: No
  Sender: FDA-Public Use
  Company Number: US-ALLERGAN-1511802US

PATIENT
  Sex: Female
  Weight: 63.49 kg

DRUGS (4)
  1. GENTEAL MILD [Concomitant]
     Active Substance: HYPROMELLOSE 2910 (4000 MPA.S)
     Indication: DRY EYE
     Dosage: UNK
     Route: 047
  2. RESTASIS [Suspect]
     Active Substance: CYCLOSPORINE
     Indication: DRY EYE
     Dosage: 2 GTT, Q12H
     Route: 047
  3. LORAZEPAM. [Concomitant]
     Active Substance: LORAZEPAM
     Dosage: UNK
     Route: 048
  4. OASIS TEARS [Concomitant]
     Active Substance: GLYCERIN
     Indication: DRY EYE
     Dosage: UNK
     Route: 047

REACTIONS (4)
  - Vertigo [Recovered/Resolved]
  - Incorrect product storage [Unknown]
  - Dizziness [Not Recovered/Not Resolved]
  - Wrong technique in product usage process [Unknown]
